FAERS Safety Report 15865378 (Version 1)
Quarter: 2019Q1

REPORT INFORMATION
  Report Type: Spontaneous
  Country: FR (occurrence: FR)
  Receive Date: 20190124
  Receipt Date: 20190124
  Transmission Date: 20190417
  Serious: Yes (Hospitalization)
  Sender: FDA-Public Use
  Company Number: PHHY2019FR012312

PATIENT
  Age: 66 Year
  Sex: Female
  Weight: 40.8 kg

DRUGS (10)
  1. AMIKACINE [Suspect]
     Active Substance: AMIKACIN
     Indication: BACTERIAL INFECTION
     Dosage: 800 MG, UNK (TOTAL)
     Route: 042
     Dates: start: 20181101
  2. AMOXICILLIN. [Suspect]
     Active Substance: AMOXICILLIN
     Indication: BACTERIAL INFECTION
     Dosage: 8 G, QD
     Route: 030
     Dates: start: 20181101, end: 20181102
  3. CEFTRIAXONE. [Suspect]
     Active Substance: CEFTRIAXONE
     Indication: INFECTION
     Dosage: 4 G, QD
     Route: 042
     Dates: start: 20181102, end: 20181102
  4. ACICLOVIR [Suspect]
     Active Substance: ACYCLOVIR
     Indication: INFECTION
     Dosage: 8.4 G, QW
     Route: 042
     Dates: start: 20181101, end: 20181106
  5. DALTEPARINE SODIQUE [Concomitant]
     Indication: THROMBOSIS PROPHYLAXIS
     Dosage: 5000 IU, QD
     Route: 058
     Dates: start: 20181030, end: 20181122
  6. PIPERACILLINE [Suspect]
     Active Substance: PIPERACILLIN SODIUM
     Indication: BACTERIAL INFECTION
     Dosage: 12 G, QD
     Route: 042
     Dates: start: 20181101, end: 20181101
  7. CITALOPRAM [Concomitant]
     Active Substance: CITALOPRAM HYDROBROMIDE
     Indication: DEPRESSION
     Dosage: 20 MG, QD
     Route: 048
     Dates: start: 20181030, end: 20181123
  8. LANSOPRAZOLE. [Concomitant]
     Active Substance: LANSOPRAZOLE
     Indication: PROPHYLAXIS AGAINST GASTROINTESTINAL ULCER
     Dosage: 30 MG, QD
     Route: 048
     Dates: end: 20181103
  9. TAZOBACTAM [Suspect]
     Active Substance: TAZOBACTAM
     Indication: BACTERIAL INFECTION
     Dosage: 1500 MG, QD
     Route: 042
     Dates: start: 20181101, end: 20181101
  10. VILDAGLIPTINE [Concomitant]
     Active Substance: VILDAGLIPTIN
     Indication: TYPE 2 DIABETES MELLITUS
     Dosage: 500 MG, UNK
     Route: 048

REACTIONS (5)
  - Purpura [Recovered/Resolved]
  - Eosinophilia [Recovering/Resolving]
  - Pruritus [Recovered/Resolved]
  - Rash [Recovered/Resolved]
  - Rash maculo-papular [Recovered/Resolved]

NARRATIVE: CASE EVENT DATE: 20181102
